FAERS Safety Report 19807377 (Version 1)
Quarter: 2021Q3

REPORT INFORMATION
  Report Type: Spontaneous
  Country: US (occurrence: US)
  Receive Date: 20210903
  Receipt Date: 20210903
  Transmission Date: 20211014
  Serious: Yes (Hospitalization)
  Sender: FDA-Public Use
  Company Number: None

PATIENT
  Sex: Female

DRUGS (1)
  1. TEMOZOLOMIDE 100MG SUN PHARMACEUTICALS [Suspect]
     Active Substance: TEMOZOLOMIDE
     Indication: MALIGNANT NERVOUS SYSTEM NEOPLASM
     Route: 048
     Dates: start: 20200811

REACTIONS (3)
  - Seizure [None]
  - Urticaria [None]
  - Pruritus [None]
